FAERS Safety Report 6361721-7 (Version None)
Quarter: 2009Q3

REPORT INFORMATION
  Report Type: 
  Country: None (occurrence: None)
  Receive Date: 20090918
  Receipt Date: 20090908
  Transmission Date: 20100115
  Serious: Yes (Other)
  Sender: FDA-Public Use
  Company Number: FR-PFIZER INC-2009228673

PATIENT
  Age: 52 Year

DRUGS (2)
  1. ZOLOFT [Suspect]
     Dosage: 200 MG, 1X/DAY
     Dates: start: 20030101
  2. STILNOX [Concomitant]
     Indication: SLEEP DISORDER
     Dosage: 1 DF, 1X/DAY
     Route: 048
     Dates: start: 20060222, end: 20090408

REACTIONS (4)
  - DRY MOUTH [None]
  - GINGIVAL PAIN [None]
  - INFECTION [None]
  - TOOTH DISORDER [None]
